FAERS Safety Report 13759766 (Version 1)
Quarter: 2017Q3

REPORT INFORMATION
  Report Type: Spontaneous
  Country: PT (occurrence: PT)
  Receive Date: 20170717
  Receipt Date: 20170717
  Transmission Date: 20171127
  Serious: Yes (Other)
  Sender: FDA-Public Use
  Company Number: PT-DSJP-DSE-2017-123967

PATIENT
  Age: 69 Year
  Sex: Female

DRUGS (3)
  1. PANTOPRAZOLE [Concomitant]
     Active Substance: PANTOPRAZOLE
     Indication: GASTROOESOPHAGEAL REFLUX DISEASE
  2. ALISKIREN [Concomitant]
     Active Substance: ALISKIREN
     Indication: HYPERTENSION
  3. OLMESARTAN MEDOXOMIL. [Suspect]
     Active Substance: OLMESARTAN MEDOXOMIL
     Route: 048

REACTIONS (2)
  - Malabsorption [Recovered/Resolved]
  - Deep vein thrombosis [Unknown]
